FAERS Safety Report 8195665-5 (Version None)
Quarter: 2012Q1

REPORT INFORMATION
  Report Type: 
  Country: None (occurrence: None)
  Receive Date: 20120308
  Receipt Date: 20120227
  Transmission Date: 20120608
  Serious: Yes (Hospitalization, Other)
  Sender: FDA-Public Use
  Company Number: US-ELI_LILLY_AND_COMPANY-US200910007692

PATIENT
  Sex: Female

DRUGS (6)
  1. AMITRIPTYLINE HCL [Concomitant]
  2. LOTENSION [Concomitant]
  3. ZYPREXA [Suspect]
     Indication: SCHIZOPHRENIA
     Dosage: 1 D/F, UNK
  4. TRIAVIL [Concomitant]
  5. HALDOL [Concomitant]
  6. DILTIAZEM HCL [Concomitant]

REACTIONS (13)
  - ACUTE MYOCARDIAL INFARCTION [None]
  - CORONARY ARTERY DISEASE [None]
  - HYPERTENSION [None]
  - HYPERTROPHIC CARDIOMYOPATHY [None]
  - EAR INFECTION [None]
  - PRINZMETAL ANGINA [None]
  - HYPERLIPIDAEMIA [None]
  - DIZZINESS [None]
  - ACUTE CORONARY SYNDROME [None]
  - GASTROOESOPHAGEAL REFLUX DISEASE [None]
  - NEUROPATHY PERIPHERAL [None]
  - METABOLIC SYNDROME [None]
  - TYPE 1 DIABETES MELLITUS [None]
